FAERS Safety Report 9819450 (Version 1)
Quarter: 2014Q1

REPORT INFORMATION
  Report Type: Spontaneous
  Country: US (occurrence: US)
  Receive Date: 20140115
  Receipt Date: 20140115
  Transmission Date: 20141002
  Serious: No
  Sender: FDA-Public Use
  Company Number: US-ENDO PHARMACEUTICALS INC.-HCDA20130073

PATIENT
  Sex: Male

DRUGS (1)
  1. HYDROCODONE/ACETAMINOPHEN 5MG/325MG [Suspect]
     Indication: PAIN
     Dosage: 20/1300MG
     Route: 048
     Dates: start: 201302, end: 201303

REACTIONS (7)
  - Abdominal pain upper [Unknown]
  - Hyperhidrosis [Unknown]
  - Chills [Unknown]
  - Abdominal distension [Unknown]
  - Abdominal pain [Unknown]
  - Product quality issue [None]
  - Product substitution issue [None]
